FAERS Safety Report 5270186-8 (Version None)
Quarter: 2007Q1

REPORT INFORMATION
  Report Type: 
  Country: None (occurrence: None)
  Receive Date: 20070320
  Receipt Date: 20070308
  Transmission Date: 20070707
  Serious: Yes (Other)
  Sender: FDA-Public Use
  Company Number: JP-SANOFI-SYNTHELABO-A01200702728

PATIENT
  Age: 70 Year

DRUGS (4)
  1. LEUCOVORIN CALCIUM [Concomitant]
     Route: 041
  2. OXALIPLATIN [Suspect]
     Route: 041
  3. FLUOROURACIL [Concomitant]
     Route: 041
  4. FLUOROURACIL [Concomitant]
     Route: 041

REACTIONS (1)
  - SHOCK [None]
